FAERS Safety Report 7350688-0 (Version None)
Quarter: 2011Q1

REPORT INFORMATION
  Report Type: 
  Country: None (occurrence: None)
  Receive Date: 20110222
  Receipt Date: 20101104
  Transmission Date: 20110831
  Serious: No
  Sender: FDA-Public Use
  Company Number: 021585

PATIENT
  Sex: Female

DRUGS (3)
  1. KEPPRA [Suspect]
  2. TRILEPTAL [Concomitant]
  3. LACOSAMIDE [Suspect]
     Dosage: (50 MG)

REACTIONS (2)
  - CRYING [None]
  - DEPRESSION [None]
